FAERS Safety Report 13632720 (Version 1)
Quarter: 2017Q2

REPORT INFORMATION
  Report Type: Spontaneous
  Country: US (occurrence: US)
  Receive Date: 20170531
  Receipt Date: 20170531
  Transmission Date: 20170830
  Serious: No
  Sender: FDA-Public Use
  Company Number: US-ASTELLAS-1475592

PATIENT
  Sex: Male

DRUGS (1)
  1. TARCEVA [Suspect]
     Active Substance: ERLOTINIB HYDROCHLORIDE
     Indication: LUNG NEOPLASM MALIGNANT
     Route: 048
     Dates: start: 20141011

REACTIONS (7)
  - Erythema [Unknown]
  - Rash [Unknown]
  - Diarrhoea [Unknown]
  - Hallucination [Unknown]
  - Cough [Unknown]
  - Insomnia [Unknown]
  - Asthenia [Unknown]
